FAERS Safety Report 9013606 (Version 3)
Quarter: 2013Q2

REPORT INFORMATION
  Report Type: Report from Study
  Country: US (occurrence: US)
  Receive Date: 20130115
  Receipt Date: 20130523
  Transmission Date: 20140414
  Serious: Yes (Other)
  Sender: FDA-Public Use
  Company Number: PHEH2013US001015

PATIENT
  Age: 71 Year
  Sex: Female
  Weight: 87.98 kg

DRUGS (6)
  1. GLEEVEC [Suspect]
     Indication: CHRONIC MYELOID LEUKAEMIA
     Dosage: 1 DF, QD: 1 TABLET BY MOUTH DAILY
     Route: 048
  2. WARFARIN [Interacting]
  3. NITRO-DUR [Concomitant]
     Dosage: 0.2 MG/HR
  4. METOPROLOL TARTRATE [Concomitant]
     Dosage: 25 MG, UNK
  5. VYTORIN [Concomitant]
     Dosage: 10 MG, UNK
  6. MAGNESIUM [Concomitant]
     Dosage: 400 MG, UNK

REACTIONS (6)
  - Malignant melanoma [Unknown]
  - Second primary malignancy [Unknown]
  - Diarrhoea [Recovered/Resolved]
  - Atrial fibrillation [Unknown]
  - Drug interaction [Unknown]
  - Nausea [Unknown]
